FAERS Safety Report 5134797-2 (Version None)
Quarter: 2006Q4

REPORT INFORMATION
  Report Type: 
  Country: None (occurrence: None)
  Receive Date: 20060831
  Receipt Date: 20050912
  Transmission Date: 20070319
  Serious: Yes (Hospitalization, Other)
  Sender: FDA-Public Use
  Company Number: 2005-US-00106

PATIENT
  Age: 57 Year
  Sex: Female
  Weight: 86.1834 kg

DRUGS (6)
  1. LISINOPRIL AND HYDROCHLOROTHIAZIDE [Suspect]
     Indication: HYPERTENSION
     Dosage: 20 MG/25 MG DAILY,ORAL
     Route: 048
     Dates: start: 20030101, end: 20050630
  2. VERAPAMIL [Suspect]
     Indication: HYPERTENSION
     Dosage: 240 MG, ORAL
     Route: 048
  3. ATORVASTATIN CALCIUM [Concomitant]
  4. TOCOPHEROL CONCENTRATE CAP [Concomitant]
  5. CALCIUM [Concomitant]
  6. ASCORBIC ACID [Concomitant]

REACTIONS (1)
  - ANAPHYLACTIC REACTION [None]
